FAERS Safety Report 8455301-7 (Version None)
Quarter: 2012Q2

REPORT INFORMATION
  Report Type: 
  Country: None (occurrence: None)
  Receive Date: 20120621
  Receipt Date: 20120619
  Transmission Date: 20120825
  Serious: No
  Sender: FDA-Public Use
  Company Number: US-BAYER-2012-061157

PATIENT
  Age: 61 Year
  Sex: Female

DRUGS (7)
  1. METHOTREXATE [Concomitant]
     Dosage: 2.5 MG, UNK
     Dates: start: 20120326
  2. ALOXI [Concomitant]
     Dosage: UNK
     Dates: start: 20120326
  3. GLYBURIDE [Concomitant]
     Dosage: 1.25 MG, UNK
     Dates: start: 20120326
  4. VITAMIN A [Concomitant]
     Dosage: UNK
     Dates: start: 20120326
  5. CYTOXAN [Concomitant]
     Dosage: 2 G, UNK
     Dates: start: 20120326
  6. NEXAVAR [Suspect]
     Indication: LUNG NEOPLASM MALIGNANT
     Dosage: 400 MG QOD ALT WITH 200 MG QOD
     Route: 048
     Dates: start: 20120327, end: 20120518
  7. GABAPENTIN [Concomitant]
     Dosage: 100 MG, UNK
     Dates: start: 20120326

REACTIONS (2)
  - WHITE BLOOD CELL COUNT DECREASED [None]
  - DIARRHOEA [None]
